FAERS Safety Report 14401155 (Version 3)
Quarter: 2018Q1

REPORT INFORMATION
  Report Type: Spontaneous
  Country: US (occurrence: US)
  Receive Date: 20180117
  Receipt Date: 20180209
  Transmission Date: 20180509
  Serious: No
  Sender: FDA-Public Use
  Company Number: US-PFIZER INC-2018020899

PATIENT
  Age: 58 Year
  Sex: Male

DRUGS (2)
  1. PEMETREXED. [Suspect]
     Active Substance: PEMETREXED
     Indication: ANAPLASTIC LYMPHOMA KINASE GENE MUTATION
     Dosage: UNK, (2 CYCLES)
     Dates: start: 20131114, end: 20131226
  2. CARBOPLATIN. [Suspect]
     Active Substance: CARBOPLATIN
     Indication: ANAPLASTIC LYMPHOMA KINASE GENE MUTATION
     Dosage: UNK, (2 CYCLES)
     Dates: start: 20131114, end: 20131226

REACTIONS (1)
  - Neoplasm progression [Unknown]

NARRATIVE: CASE EVENT DATE: 2013
